FAERS Safety Report 5709438-3 (Version None)
Quarter: 2008Q2

REPORT INFORMATION
  Report Type: 
  Country: None (occurrence: None)
  Receive Date: 20080417
  Receipt Date: 20080417
  Transmission Date: 20081010
  Serious: No
  Sender: FDA-Public Use
  Company Number: None

PATIENT
  Age: 65 Year
  Sex: Female

DRUGS (1)
  1. VISIPAQUE [Suspect]
     Indication: PHYSICAL EXAMINATION
     Dosage: 100 CC  IV
     Dates: start: 20080226

REACTIONS (2)
  - PRURITUS [None]
  - SNEEZING [None]
